FAERS Safety Report 5288208-7 (Version None)
Quarter: 2007Q2

REPORT INFORMATION
  Report Type: 
  Country: None (occurrence: None)
  Receive Date: 20070402
  Receipt Date: 20070402
  Transmission Date: 20071010
  Serious: Yes (Hospitalization)
  Sender: FDA-Public Use
  Company Number: None

PATIENT
  Sex: Male
  Weight: 77.1115 kg

DRUGS (2)
  1. CETUXIMAB [Suspect]
     Indication: NEOPLASM MALIGNANT
     Dosage: 478MG IV / WEEKLY
     Route: 042
     Dates: start: 20070313
  2. AVASTIN [Suspect]
     Indication: NEOPLASM MALIGNANT
     Dosage: 1163 MG IV / EVERY 3 WEEKS
     Route: 042
     Dates: start: 20070313

REACTIONS (2)
  - DYSPHAGIA [None]
  - ORAL INTAKE REDUCED [None]
